FAERS Safety Report 8169468-1 (Version None)
Quarter: 2012Q1

REPORT INFORMATION
  Report Type: 
  Country: None (occurrence: None)
  Receive Date: 20120104
  Receipt Date: 20110916
  Transmission Date: 20120608
  Serious: Yes (Hospitalization)
  Sender: FDA-Public Use
  Company Number: 2011HGS-002546

PATIENT
  Age: 47 Year
  Sex: Female
  Weight: 113.3993 kg

DRUGS (11)
  1. EPIPEN (EPINEPHRINE) (EPINEPHRINE) [Concomitant]
  2. NEXIUM [Concomitant]
  3. LIBRAX (LIBRAX /SWE/) (CHLORDIAZEPOXIDE HYDROCHLORIDE, CLIDINIUM BROMI [Concomitant]
  4. CALCIUM (CALCIUM) (CALCIUM) [Concomitant]
  5. FOLIC ACID [Concomitant]
  6. BENLYSTA [Suspect]
     Indication: SYSTEMIC LUPUS ERYTHEMATOSUS
     Dosage: INTRAVENOUS DRIP
     Route: 041
     Dates: start: 20110816, end: 20110816
  7. CELLCEPT (MYCOPHENOLATE MOFETIL) (MYCOPHENOLATE MOFETIL) [Concomitant]
  8. PREDNISONE [Concomitant]
  9. MAGNESIUM (MAGNESIUM) (MAGNESIUM) [Concomitant]
  10. CALCITRIOL (CALCITRIOL) (CALCITRIOL) [Concomitant]
  11. PLAQUENIL (HYDROXYCHLOROQUINE SULFATE) (HYDROXYCHLOROQUINE SULFATE) [Concomitant]

REACTIONS (2)
  - PNEUMONIA [None]
  - ABDOMINAL PAIN [None]
